FAERS Safety Report 9323379 (Version 3)
Quarter: 2013Q3

REPORT INFORMATION
  Report Type: Spontaneous
  Country: FR (occurrence: FR)
  Receive Date: 20130603
  Receipt Date: 20130809
  Transmission Date: 20140515
  Serious: Yes (Disabling, Other)
  Sender: FDA-Public Use
  Company Number: FR-ROCHE-1225997

PATIENT
  Age: 62 Year
  Sex: Male
  Weight: 65 kg

DRUGS (5)
  1. PEGASYS [Suspect]
     Indication: CHRONIC HEPATITIS
     Route: 058
     Dates: start: 20120215, end: 20130411
  2. SPIRIVA [Concomitant]
  3. SYMBICORT [Concomitant]
  4. VENTOLIN [Concomitant]
  5. DOLIPRANE [Concomitant]
     Indication: PAIN

REACTIONS (4)
  - Loose tooth [Not Recovered/Not Resolved]
  - Joint swelling [Not Recovered/Not Resolved]
  - Total lung capacity decreased [Not Recovered/Not Resolved]
  - Drug ineffective [Not Recovered/Not Resolved]
